FAERS Safety Report 9433731 (Version 1)
Quarter: 2013Q3

REPORT INFORMATION
  Report Type: Spontaneous
  Country: US (occurrence: US)
  Receive Date: 20130731
  Receipt Date: 20130731
  Transmission Date: 20140515
  Serious: Yes (Hospitalization, Other)
  Sender: FDA-Public Use
  Company Number: US-RB-056609-13

PATIENT
  Age: 66 Year
  Sex: Female

DRUGS (3)
  1. SUBOXONE FILM [Suspect]
     Indication: PAIN
     Dosage: SUBOXONE FILM
     Route: 060
     Dates: start: 20130706, end: 201307
  2. SUBOXONE FILM [Suspect]
     Dosage: SUBOXONE FILM; 1/3 OF AN 8 MG FILM 3 TIMES/DAILY - CUTTING
     Route: 060
     Dates: start: 201307, end: 20130720
  3. XANAX [Concomitant]
     Indication: ANXIETY
     Dosage: 1/2 TO 1 TABLET DAILY

REACTIONS (9)
  - Off label use [Recovered/Resolved]
  - Off label use [Recovered/Resolved]
  - Vomiting [Recovered/Resolved]
  - Aggression [Recovered/Resolved]
  - Dehydration [Recovered/Resolved]
  - Urinary tract infection [Recovered/Resolved]
  - Delirium [Recovered/Resolved]
  - Wrong technique in drug usage process [Recovered/Resolved]
  - Underdose [Recovered/Resolved]
